FAERS Safety Report 14402873 (Version 2)
Quarter: 2018Q2

REPORT INFORMATION
  Report Type: Spontaneous
  Country: PL (occurrence: PL)
  Receive Date: 20180117
  Receipt Date: 20180611
  Transmission Date: 20180711
  Serious: Yes (Death, Other)
  Sender: FDA-Public Use
  Company Number: PL-JNJFOC-20180114099

PATIENT

DRUGS (2)
  1. IBRUTINIB [Suspect]
     Active Substance: IBRUTINIB
     Indication: CHRONIC LYMPHOCYTIC LEUKAEMIA
     Route: 048
  2. IBRUTINIB [Suspect]
     Active Substance: IBRUTINIB
     Indication: LYMPHOCYTIC LYMPHOMA
     Route: 048

REACTIONS (29)
  - Breast cancer metastatic [Fatal]
  - Pneumonia [Unknown]
  - Skin lesion [Unknown]
  - Vitreous haemorrhage [Unknown]
  - Nausea [Unknown]
  - Sepsis [Unknown]
  - Mucosal inflammation [Unknown]
  - Pleural effusion [Unknown]
  - Facial paralysis [Unknown]
  - Herpes simplex [Unknown]
  - Arrhythmia supraventricular [Unknown]
  - Urinary tract infection [Unknown]
  - Abdominal pain [Unknown]
  - Atrial fibrillation [Unknown]
  - Neutropenia [Unknown]
  - Infection [Fatal]
  - Cardiac failure [Unknown]
  - Pyrexia [Unknown]
  - Arthralgia [Unknown]
  - Haemorrhagic disorder [Unknown]
  - Thrombocytopenia [Unknown]
  - Upper gastrointestinal haemorrhage [Unknown]
  - Neuropathy peripheral [Unknown]
  - Upper respiratory tract infection [Unknown]
  - Rash [Unknown]
  - Diarrhoea [Unknown]
  - Vertigo [Unknown]
  - Cognitive disorder [Unknown]
  - Adverse event [Unknown]
